FAERS Safety Report 23939964 (Version 2)
Quarter: 2024Q3

REPORT INFORMATION
  Report Type: Spontaneous
  Country: US (occurrence: US)
  Receive Date: 20240605
  Receipt Date: 20240909
  Transmission Date: 20241016
  Serious: Yes (Hospitalization, Other)
  Sender: RISING PHARMACEUTICALS
  Company Number: US-RISINGPHARMA-US-2024RISSPO00160

PATIENT
  Sex: Female
  Weight: 44.4 kg

DRUGS (2)
  1. CAPECITABINE [Suspect]
     Active Substance: CAPECITABINE
     Indication: Product used for unknown indication
     Route: 048
     Dates: start: 20240410, end: 20240422
  2. PEMBROLIZUMAB [Suspect]
     Active Substance: PEMBROLIZUMAB
     Indication: Product used for unknown indication
     Route: 042
     Dates: start: 20240403, end: 20240403

REACTIONS (3)
  - Colitis [Recovered/Resolved]
  - Diarrhoea haemorrhagic [Unknown]
  - Hypotension [Unknown]

NARRATIVE: CASE EVENT DATE: 20240501
